FAERS Safety Report 6142318-0 (Version None)
Quarter: 2009Q2

REPORT INFORMATION
  Report Type: 
  Country: None (occurrence: None)
  Receive Date: 20090403
  Receipt Date: 20080208
  Transmission Date: 20091009
  Serious: Yes (Death)
  Sender: FDA-Public Use
  Company Number: US-ASTRAZENECA-2007UW02159

PATIENT
  Age: 14705 Day
  Sex: Female
  Weight: 158.3 kg

DRUGS (14)
  1. SEROQUEL [Suspect]
     Indication: DEPRESSION
     Dosage: 25-200 MG
     Route: 048
     Dates: start: 20001206, end: 20060601
  2. SEROQUEL [Suspect]
     Indication: BIPOLAR DISORDER
     Dosage: 25-200 MG
     Route: 048
     Dates: start: 20001206, end: 20060601
  3. ABILIFY [Concomitant]
     Dosage: 10-30 MG
     Dates: start: 20060524
  4. HALDOL [Concomitant]
     Dates: start: 19990101, end: 20001101
  5. DEPAKOTE [Concomitant]
     Dates: start: 19990101
  6. LISINOPRIL [Concomitant]
     Dates: start: 20060301
  7. ATENOLOL [Concomitant]
     Dates: start: 20060301
  8. ACTOS [Concomitant]
     Dates: start: 20060301
  9. GLIPIZIDE [Concomitant]
     Dates: start: 20060301
  10. METFORMIN HCL [Concomitant]
     Dates: start: 20060301
  11. LOVENOX [Concomitant]
     Dates: start: 20060524
  12. LAMICTAL [Concomitant]
     Dates: start: 20060315
  13. INSULIN [Concomitant]
  14. BENZTROPINE MESYLATE [Concomitant]

REACTIONS (4)
  - DIABETIC COMPLICATION [None]
  - PAIN IN EXTREMITY [None]
  - PULMONARY EMBOLISM [None]
  - TYPE 2 DIABETES MELLITUS [None]
